FAERS Safety Report 6261815-0 (Version None)
Quarter: 2009Q3

REPORT INFORMATION
  Report Type: 
  Country: None (occurrence: None)
  Receive Date: 20090709
  Receipt Date: 20090707
  Transmission Date: 20100115
  Serious: Yes (Death)
  Sender: FDA-Public Use
  Company Number: US-ROXANE LABORATORIES, INC.-2009-RO-00670RO

PATIENT
  Sex: Male

DRUGS (10)
  1. MERCAPTOPURINE [Suspect]
     Indication: INFLAMMATORY BOWEL DISEASE
  2. MERCAPTOPURINE [Suspect]
     Indication: COLITIS ULCERATIVE
  3. PREDNISONE [Suspect]
     Indication: INFLAMMATORY BOWEL DISEASE
  4. PREDNISONE [Suspect]
     Indication: COLITIS ULCERATIVE
  5. REMICADE [Suspect]
     Indication: INFLAMMATORY BOWEL DISEASE
     Dates: start: 20020101, end: 20061101
  6. REMICADE [Suspect]
     Indication: COLITIS ULCERATIVE
  7. HUMIRA [Suspect]
     Indication: INFLAMMATORY BOWEL DISEASE
     Dates: start: 20061101, end: 20070601
  8. HUMIRA [Suspect]
     Indication: COLITIS ULCERATIVE
  9. PURINETHOL [Suspect]
     Indication: INFLAMMATORY BOWEL DISEASE
  10. PURINETHOL [Suspect]
     Indication: COLITIS ULCERATIVE

REACTIONS (1)
  - HEPATOSPLENIC T-CELL LYMPHOMA [None]
